FAERS Safety Report 4290166-9 (Version None)
Quarter: 2004Q1

REPORT INFORMATION
  Report Type: 
  Country: None (occurrence: None)
  Receive Date: 20040206
  Receipt Date: 20040127
  Transmission Date: 20041129
  Serious: Yes (Hospitalization)
  Sender: FDA-Public Use
  Company Number: 2003PK01876

PATIENT
  Age: 67 Year
  Sex: Male
  Weight: 90 kg

DRUGS (4)
  1. METOPROLOL SUCCINATE [Suspect]
     Indication: HYPERTENSION
  2. FUROSEMIDE [Concomitant]
  3. PANTOZOL [Concomitant]
  4. LAXANZ [Concomitant]

REACTIONS (6)
  - ABDOMINAL MASS [None]
  - ABDOMINAL PAIN LOWER [None]
  - ABSCESS INTESTINAL [None]
  - GASTROINTESTINAL DISORDER [None]
  - INFLAMMATION [None]
  - MESENTERIC FIBROSIS [None]
